FAERS Safety Report 9847567 (Version 2)
Quarter: 2014Q1

REPORT INFORMATION
  Report Type: Report from Study
  Country: BR (occurrence: BR)
  Receive Date: 20140128
  Receipt Date: 20140329
  Transmission Date: 20141002
  Serious: Yes (Hospitalization, Other)
  Sender: FDA-Public Use
  Company Number: BR-ROCHE-1337981

PATIENT
  Age: 55 Year
  Sex: Female
  Weight: 64 kg

DRUGS (10)
  1. XOLAIR [Suspect]
     Indication: ASTHMA
     Route: 065
     Dates: start: 20130130, end: 20131227
  2. XOLAIR [Suspect]
     Route: 065
     Dates: start: 20131227, end: 20131227
  3. SERETIDE [Concomitant]
  4. SALBUTAMOL [Concomitant]
  5. PREDNISONE [Concomitant]
     Route: 065
  6. SINGULAIR [Concomitant]
     Route: 065
     Dates: start: 20130130
  7. AMOXICILLIN [Concomitant]
  8. NORFLOXACIN [Concomitant]
  9. METICORTEN [Concomitant]
     Route: 065
  10. BUDESONIDE [Concomitant]
     Route: 065

REACTIONS (4)
  - Asthma [Recovered/Resolved]
  - Road traffic accident [Unknown]
  - Rib fracture [Recovering/Resolving]
  - Foot fracture [Recovering/Resolving]
